FAERS Safety Report 9892219 (Version 2)
Quarter: 2014Q2

REPORT INFORMATION
  Report Type: Report from Study
  Country: JP (occurrence: JP)
  Receive Date: 20140212
  Receipt Date: 20140404
  Transmission Date: 20141212
  Serious: Yes (Hospitalization, Other)
  Sender: FDA-Public Use
  Company Number: JP-TAKEDA-2014TUS000962

PATIENT
  Sex: 0

DRUGS (4)
  1. FEBURIC [Suspect]
     Indication: HYPERURICAEMIA
     Dosage: 10 MG, QD
     Route: 048
     Dates: start: 20120924, end: 20121120
  2. FEBURIC [Suspect]
     Dosage: 20 MG, QD
     Route: 048
     Dates: start: 20121121
  3. MICOMBI COMBINATION [Concomitant]
     Indication: HYPERTENSION
     Dosage: 1 DF, QD
     Route: 048
  4. ADALAT CR [Concomitant]
     Indication: HYPERTENSION
     Dosage: 20 MG, QD
     Route: 048

REACTIONS (1)
  - Prostate cancer [Recovering/Resolving]
